FAERS Safety Report 10547917 (Version 1)
Quarter: 2014Q4

REPORT INFORMATION
  Report Type: Spontaneous
  Country: US (occurrence: None)
  Receive Date: 20141027
  Receipt Date: 20141027
  Transmission Date: 20150529
  Serious: Yes (Other)
  Sender: FDA-Public Use
  Company Number: None

PATIENT
  Age: 69 Year
  Sex: Female

DRUGS (10)
  1. BOTOX [Concomitant]
     Active Substance: ONABOTULINUMTOXINA
  2. AMOXICILLIN-POT CLAVULANATE [Concomitant]
  3. ORENCIA (WITH MALTOSE) [Concomitant]
  4. FLUTICASONE [Concomitant]
     Active Substance: FLUTICASONE\FLUTICASONE PROPIONATE
  5. ADEMPAS [Suspect]
     Active Substance: RIOCIGUAT
     Indication: PULMONARY ARTERIAL HYPERTENSION
     Route: 048
  6. PANTOPRAZOLE [Concomitant]
     Active Substance: PANTOPRAZOLE SODIUM
  7. K-TAB [Concomitant]
     Active Substance: POTASSIUM CHLORIDE
  8. TRAMADOL [Concomitant]
     Active Substance: TRAMADOL
  9. DIGOX [Concomitant]
     Active Substance: DIGOXIN
  10. MAGNESIUM OXIDE. [Concomitant]
     Active Substance: MAGNESIUM OXIDE

REACTIONS (4)
  - Nasal congestion [None]
  - Malaise [None]
  - Headache [None]
  - Sinus disorder [None]
